FAERS Safety Report 16014857 (Version 1)
Quarter: 2019Q1

REPORT INFORMATION
  Report Type: Spontaneous
  Country: DE (occurrence: DE)
  Receive Date: 20190227
  Receipt Date: 20190227
  Transmission Date: 20190418
  Serious: Yes (Death, Life-Threatening, Hospitalization)
  Sender: FDA-Public Use
  Company Number: DE-DSJP-DSE-2019-107046

PATIENT

DRUGS (5)
  1. BACLOFEN. [Concomitant]
     Active Substance: BACLOFEN
     Indication: PARESIS
     Dosage: 20 MG, QD
     Route: 048
     Dates: start: 2006
  2. BISOPROLOL [Concomitant]
     Active Substance: BISOPROLOL
     Indication: PRODUCT USED FOR UNKNOWN INDICATION
     Dosage: 0.5 DF, QD
     Route: 048
     Dates: start: 2005
  3. MEMANTIN [Concomitant]
     Active Substance: MEMANTINE
     Indication: DEMENTIA
     Dosage: 1 DF, QD
     Dates: start: 2006
  4. LIXIANA [Suspect]
     Active Substance: EDOXABAN TOSYLATE
     Indication: ANTICOAGULANT THERAPY
     Dosage: 60 MG, QD
     Route: 048
     Dates: start: 201705
  5. CARBAMAZEPIN [Concomitant]
     Active Substance: CARBAMAZEPINE
     Indication: PARTIAL SEIZURES
     Dosage: 800 MG, QD
     Dates: start: 2005

REACTIONS (4)
  - Dysarthria [Fatal]
  - Embolic stroke [Fatal]
  - Quadriplegia [Fatal]
  - Cerebral ischaemia [Fatal]

NARRATIVE: CASE EVENT DATE: 20181223
